FAERS Safety Report 19074674 (Version 1)
Quarter: 2021Q1

REPORT INFORMATION
  Report Type: Spontaneous
  Country: US (occurrence: US)
  Receive Date: 20210330
  Receipt Date: 20210330
  Transmission Date: 20210420
  Serious: No
  Sender: FDA-Public Use
  Company Number: US-ROCHE-2718605

PATIENT
  Sex: Male

DRUGS (3)
  1. OXYCODONE HYDROCHLORIDE. [Concomitant]
     Active Substance: OXYCODONE HYDROCHLORIDE
  2. ASPIRIN. [Concomitant]
     Active Substance: ASPIRIN
     Dosage: TBE
  3. ERIVEDGE [Suspect]
     Active Substance: VISMODEGIB
     Indication: BASAL CELL CARCINOMA
     Dosage: TAKE ONE CAPSULE BY MOUTH ONE TIME EACH DAY WITH OR WITHOUT FOOD, SWALLOW WHOLE DO NOT OPEN OR CRUSH
     Route: 048

REACTIONS (1)
  - Therapeutic product effect decreased [Not Recovered/Not Resolved]
